FAERS Safety Report 4342366-7 (Version None)
Quarter: 2004Q2

REPORT INFORMATION
  Report Type: 
  Country: None (occurrence: None)
  Receive Date: 20040416
  Receipt Date: 20040409
  Transmission Date: 20050107
  Serious: Yes (Other)
  Sender: FDA-Public Use
  Company Number: 2004024592

PATIENT
  Age: 72 Year
  Sex: Male
  Weight: 107.0489 kg

DRUGS (6)
  1. LIPITOR [Suspect]
     Indication: HYPERLIPIDAEMIA
     Dosage: 80 MG (BID) ORAL
     Route: 048
  2. CLOPIDOGREL BISULFATE [Suspect]
     Indication: ARTERIAL REPAIR
     Dosage: 75 MG DAILY ORAL
     Route: 048
     Dates: start: 20040201
  3. ASPIRIN [Concomitant]
  4. DILTIAZEM [Concomitant]
  5. HYDROCHLOROTHIAZIDE [Concomitant]
  6. ALENDRONATE SODIUM [Concomitant]

REACTIONS (3)
  - DYSGEUSIA [None]
  - INCREASED UPPER AIRWAY SECRETION [None]
  - MYALGIA [None]
